FAERS Safety Report 10039316 (Version 1)
Quarter: 2014Q1

REPORT INFORMATION
  Report Type: Spontaneous
  Country: GB (occurrence: GB)
  Receive Date: 20140326
  Receipt Date: 20140326
  Transmission Date: 20141002
  Serious: Yes (Hospitalization)
  Sender: FDA-Public Use
  Company Number: PHHY2014GB032745

PATIENT
  Age: 37 Year
  Sex: Male

DRUGS (5)
  1. METHADONE [Suspect]
     Dosage: 30 ML
  2. METHADONE [Suspect]
     Dosage: 20 ML
  3. DIAZEPAM [Suspect]
     Dosage: 150 MG
  4. CANNABIS [Suspect]
  5. ALCOHOL [Concomitant]

REACTIONS (33)
  - Hypoxic-ischaemic encephalopathy [Recovered/Resolved]
  - Depressed level of consciousness [Recovered/Resolved]
  - Miosis [Recovered/Resolved]
  - Confusional state [Recovered/Resolved]
  - Paranoia [Recovered/Resolved]
  - Gait disturbance [Recovered/Resolved]
  - Muscle spasms [Recovered/Resolved]
  - Affect lability [Recovered/Resolved]
  - Myoclonus [Recovered/Resolved]
  - Bradykinesia [Recovered/Resolved]
  - Hyperreflexia [Recovered/Resolved]
  - Opisthotonus [Recovered/Resolved]
  - Aggression [Recovered/Resolved]
  - Decorticate posture [Recovered/Resolved]
  - Partial seizures [Recovered/Resolved]
  - Anger [Recovered/Resolved]
  - Hypoxia [Recovered/Resolved]
  - Tachypnoea [Recovered/Resolved]
  - Hypertension [Recovered/Resolved]
  - Hyperhidrosis [Recovered/Resolved]
  - General physical health deterioration [Recovered/Resolved]
  - Cognitive disorder [Not Recovered/Not Resolved]
  - Tremor [Recovered/Resolved]
  - Pyrexia [Recovered/Resolved]
  - Quadriparesis [Not Recovered/Not Resolved]
  - Abasia [Not Recovered/Not Resolved]
  - Executive dysfunction [Not Recovered/Not Resolved]
  - Incontinence [Unknown]
  - Renal impairment [Recovered/Resolved]
  - Hyperkalaemia [Recovered/Resolved]
  - Hypoglycaemia [Recovered/Resolved]
  - Tachycardia [Recovered/Resolved]
  - Hypotension [Recovered/Resolved]
